FAERS Safety Report 7348452-1 (Version None)
Quarter: 2011Q1

REPORT INFORMATION
  Report Type: 
  Country: None (occurrence: None)
  Receive Date: 20110313
  Receipt Date: 20110214
  Transmission Date: 20110831
  Serious: No
  Sender: FDA-Public Use
  Company Number: US-B.I. PHARMACEUTICALS,INC./RIDGEFIELD-2011-BP-00143BP

PATIENT
  Sex: Female

DRUGS (17)
  1. PRADAXA [Suspect]
     Indication: ATRIAL FIBRILLATION
     Dosage: 300 MG
     Route: 048
     Dates: start: 20101201
  2. AMIODARONE [Concomitant]
     Dosage: 400 MG
  3. COREG [Concomitant]
     Dosage: 12.5 MG
  4. ASCORBIC ACID [Concomitant]
     Dosage: 500 MG
  5. VITAMIN B6 [Concomitant]
     Dosage: 100 MG
  6. VITAMIN E [Concomitant]
     Dosage: 400 MG
  7. LIPITOR [Concomitant]
     Dosage: 20 MG
  8. SYNTHROID [Concomitant]
     Dosage: 10.625 MG
  9. FOSAMAX [Concomitant]
  10. VITAMIN D [Concomitant]
     Dosage: 2000 MG
  11. VITAMIN B-12 [Concomitant]
     Dosage: 500 MG
  12. OMEGA FISH OIL [Concomitant]
  13. VASOTEC [Concomitant]
     Dosage: 40 MG
  14. PROZAC [Concomitant]
     Dosage: 10 MG
  15. OGEN [Concomitant]
  16. HA JOINT FORMULA [Concomitant]
  17. LASIX [Concomitant]
     Dosage: 80 MG

REACTIONS (5)
  - MOUTH HAEMORRHAGE [None]
  - EPISTAXIS [None]
  - DIARRHOEA [None]
  - HAEMATOCHEZIA [None]
  - DYSGEUSIA [None]
